FAERS Safety Report 7462946-X (Version None)
Quarter: 2011Q2

REPORT INFORMATION
  Report Type: 
  Country: None (occurrence: None)
  Receive Date: 20110506
  Receipt Date: 20100521
  Transmission Date: 20111010
  Serious: No
  Sender: FDA-Public Use
  Company Number: CA-BAYER-201023937NA

PATIENT
  Age: 19 Year
  Sex: Female

DRUGS (1)
  1. YASMIN 21 [Suspect]

REACTIONS (1)
  - NO ADVERSE EVENT [None]
